FAERS Safety Report 8811480 (Version 2)
Quarter: 2012Q4

REPORT INFORMATION
  Report Type: 
  Country: BR (occurrence: BR)
  Receive Date: 20120921
  Receipt Date: 20121017
  Transmission Date: 20130627
  Serious: Yes (Other)
  Sender: FDA-Public Use
  Company Number: BR-JNJFOC-20120909130

PATIENT
  Age: 42 Year
  Sex: Female

DRUGS (4)
  1. XARELTO [Suspect]
     Indication: CONGENITAL HYPERCOAGULATION
     Route: 048
  2. METICORTEN [Concomitant]
  3. NATRILIX [Concomitant]
  4. ATENOLOL [Concomitant]

REACTIONS (3)
  - Thrombosis [Recovered/Resolved]
  - Blood disorder [Recovered/Resolved]
  - International normalised ratio abnormal [Unknown]
